FAERS Safety Report 11378858 (Version 1)
Quarter: 2015Q3

REPORT INFORMATION
  Report Type: Spontaneous
  Country: US (occurrence: US)
  Receive Date: 20150811
  Receipt Date: 20150811
  Transmission Date: 20151125
  Serious: No
  Sender: FDA-Public Use
  Company Number: US-ELI_LILLY_AND_COMPANY-US200907003986

PATIENT
  Sex: Female

DRUGS (4)
  1. HUMULIN N [Suspect]
     Active Substance: INSULIN HUMAN
     Indication: TYPE 2 DIABETES MELLITUS
  2. LANTUS [Concomitant]
     Active Substance: INSULIN GLARGINE
     Dosage: 40 U, UNK
  3. LANTUS [Concomitant]
     Active Substance: INSULIN GLARGINE
     Dosage: 55 U, UNK
  4. HUMULIN R [Suspect]
     Active Substance: INSULIN HUMAN
     Indication: TYPE 2 DIABETES MELLITUS

REACTIONS (13)
  - Pruritus [Recovering/Resolving]
  - Pallor [Recovering/Resolving]
  - Blood glucose decreased [Recovered/Resolved]
  - Tremor [Unknown]
  - Blood glucose increased [Unknown]
  - Psychomotor hyperactivity [Not Recovered/Not Resolved]
  - Oesophageal spasm [Unknown]
  - Diarrhoea [Unknown]
  - Dyspepsia [Unknown]
  - Erythema [Recovering/Resolving]
  - Hypersensitivity [Recovering/Resolving]
  - Nervousness [Not Recovered/Not Resolved]
  - Gastrooesophageal reflux disease [Unknown]
